FAERS Safety Report 4402806-1 (Version None)
Quarter: 2004Q3

REPORT INFORMATION
  Report Type: 
  Country: None (occurrence: None)
  Receive Date: 20040720
  Receipt Date: 20040720
  Transmission Date: 20050211
  Serious: Yes (Death)
  Sender: FDA-Public Use
  Company Number: None

PATIENT
  Age: 5 Month
  Sex: Male
  Weight: 8.6183 kg

DRUGS (2)
  1. METHADONE 145 MG / LIGUID [Suspect]
     Dosage: ORAL
     Route: 048
  2. COUGH SYRUP [Suspect]
     Indication: COUGH
     Dosage: OTC OTC ORAL
     Route: 048

REACTIONS (3)
  - MEDICATION ERROR [None]
  - MULTIPLE DRUG OVERDOSE [None]
  - PNEUMONIA [None]
